FAERS Safety Report 6042927-3 (Version None)
Quarter: 2009Q1

REPORT INFORMATION
  Report Type: 
  Country: None (occurrence: None)
  Receive Date: 20090119
  Receipt Date: 20090113
  Transmission Date: 20090719
  Serious: Yes (Other)
  Sender: FDA-Public Use
  Company Number: B0553939A

PATIENT
  Age: 56 Year
  Sex: Female

DRUGS (3)
  1. RANITIDINE [Suspect]
     Indication: PRURITUS
  2. ERYTHROPED [Suspect]
     Indication: INFECTED BITES
     Dosage: 2000MG PER DAY
     Route: 048
     Dates: start: 20080729, end: 20080731
  3. LORATADINE [Suspect]
     Indication: PRURITUS

REACTIONS (4)
  - BURNING SENSATION [None]
  - CHOLESTASIS [None]
  - DYSGEUSIA [None]
  - TONGUE DISCOLOURATION [None]
